FAERS Safety Report 10286049 (Version 1)
Quarter: 2014Q3

REPORT INFORMATION
  Report Type: Spontaneous
  Country: US (occurrence: None)
  Receive Date: 20140703
  Receipt Date: 20140703
  Transmission Date: 20150326
  Serious: No
  Sender: FDA-Public Use
  Company Number: None

PATIENT
  Age: 3 Year
  Sex: Female
  Weight: 14.06 kg

DRUGS (1)
  1. PERIACTIN [Suspect]
     Active Substance: CYPROHEPTADINE HYDROCHLORIDE
     Indication: INCREASED APPETITE
     Route: 048
     Dates: start: 20140702, end: 20140702

REACTIONS (3)
  - Mood swings [None]
  - Restlessness [None]
  - Psychomotor hyperactivity [None]

NARRATIVE: CASE EVENT DATE: 20140702
